FAERS Safety Report 9937075 (Version 1)
Quarter: 2014Q1

REPORT INFORMATION
  Report Type: Spontaneous
  Country: US (occurrence: None)
  Receive Date: 20140122
  Receipt Date: 20140122
  Transmission Date: 20141002
  Serious: No
  Sender: FDA-Public Use
  Company Number: AP356-00312-SPO-US

PATIENT
  Age: 69 Year
  Sex: Female
  Weight: 86 kg

DRUGS (6)
  1. BELVIQ (LORCASERIN HYDROCHLORIDE) [Suspect]
     Indication: WEIGHT CONTROL
     Route: 048
     Dates: start: 20131113
  2. LEVOTHYROXINE (LEVOTHYROXINE) [Concomitant]
  3. KLOR-CON (POTASSIUM CHLORIDE) [Concomitant]
  4. LOSARTAN/HYDROCHLOROTHIAZIDE (HYZAAR /01284801/) [Concomitant]
  5. CRESTOR (ROSUVASTATIN) [Concomitant]
  6. OMEPRAZOLE (OMEPRAZOLE) [Concomitant]

REACTIONS (2)
  - Cough [None]
  - Chills [None]
